FAERS Safety Report 12803898 (Version 2)
Quarter: 2016Q4

REPORT INFORMATION
  Report Type: Spontaneous
  Country: US (occurrence: US)
  Receive Date: 20161003
  Receipt Date: 20161212
  Transmission Date: 20170207
  Serious: Yes (Hospitalization)
  Sender: FDA-Public Use
  Company Number: US-JNJFOC-20160928753

PATIENT
  Age: 72 Year
  Sex: Female

DRUGS (3)
  1. CLOBETASOL [Concomitant]
     Active Substance: CLOBETASOL
     Indication: PSORIASIS
     Dosage: 0.05% 3 GM, ALSO REPORTED AS 30 GM
     Route: 061
  2. STELARA [Suspect]
     Active Substance: USTEKINUMAB
     Indication: PSORIASIS
     Dosage: AT INFUSION CENTER, RECEVED APPROXIMATELY 3 INJECTIONS.
     Route: 058
     Dates: start: 201606, end: 201608
  3. TRIAMCINOLONE [Concomitant]
     Active Substance: TRIAMCINOLONE
     Indication: PSORIASIS
     Dosage: 0.1 % 1 LB JAR/ BID
     Route: 061

REACTIONS (2)
  - Septic shock [Recovered/Resolved]
  - Cystitis [Recovered/Resolved]

NARRATIVE: CASE EVENT DATE: 201608
